FAERS Safety Report 7555669-X (Version None)
Quarter: 2011Q2

REPORT INFORMATION
  Report Type: 
  Country: None (occurrence: None)
  Receive Date: 20110617
  Receipt Date: 20081006
  Transmission Date: 20111010
  Serious: Yes (Hospitalization)
  Sender: FDA-Public Use
  Company Number: PHHY2008CA11781

PATIENT
  Sex: Female

DRUGS (5)
  1. FELDOMPAMINE [Concomitant]
     Dosage: 5 MG, UNK
  2. DIOVAN [Suspect]
     Dosage: 160 MG, BID
     Route: 048
  3. ASPIRIN [Concomitant]
     Dosage: 81 MG, UNK
  4. DIOVAN [Suspect]
     Dosage: 160 MG, BID
     Route: 048
     Dates: start: 20070514
  5. METOPROLOL TARTRATE [Concomitant]
     Dosage: 25 MG, BID

REACTIONS (9)
  - GAIT DISTURBANCE [None]
  - HYPOAESTHESIA FACIAL [None]
  - PAIN [None]
  - RASH [None]
  - MUSCLE SPASMS [None]
  - CEREBROVASCULAR ACCIDENT [None]
  - OEDEMA PERIPHERAL [None]
  - ASTHENIA [None]
  - MUSCULAR WEAKNESS [None]
